FAERS Safety Report 26002334 (Version 3)
Quarter: 2025Q4

REPORT INFORMATION
  Report Type: Report from Study
  Country: CA (occurrence: CA)
  Receive Date: 20251105
  Receipt Date: 20251110
  Transmission Date: 20260118
  Serious: Yes (Death)
  Sender: ABBVIE
  Company Number: CA-ABBVIE-6531272

PATIENT
  Age: 63 Year
  Sex: Male

DRUGS (83)
  1. VENETOCLAX [Suspect]
     Active Substance: VENETOCLAX
     Indication: Acute myeloid leukaemia
     Dosage: MODIFICATION TO THE DAILY DOSE: DOSE INCREASE ?REASON FOR ENDING THE TREATMENT DOSE: DOSE CHANGE/...
     Route: 048
     Dates: start: 20240119, end: 20240120
  2. VENETOCLAX [Suspect]
     Active Substance: VENETOCLAX
     Indication: Acute myeloid leukaemia
     Dosage: REASON FOR ENDING THE TREATMENT DOSE: END OF CYCLE
     Route: 048
     Dates: start: 20240121, end: 20240215
  3. VENETOCLAX [Suspect]
     Active Substance: VENETOCLAX
     Indication: Acute myeloid leukaemia
     Dosage: REASON FOR ENDING THE TREATMENT DOSE: END OF CYCLE
     Route: 048
     Dates: start: 20240229, end: 20240327
  4. VENETOCLAX [Suspect]
     Active Substance: VENETOCLAX
     Indication: Acute myeloid leukaemia
     Dosage: START DATE OF DOSAGE MODIFICATION?LAST ADMIN DATE: APR 2024
     Route: 048
     Dates: start: 20240404
  5. VALACYCLOVIR [Concomitant]
     Active Substance: VALACYCLOVIR HYDROCHLORIDE
     Indication: Antiviral prophylaxis
     Route: 048
     Dates: start: 20240118, end: 20240119
  6. VALACYCLOVIR [Concomitant]
     Active Substance: VALACYCLOVIR HYDROCHLORIDE
     Indication: Antiviral prophylaxis
     Route: 048
     Dates: start: 20240215
  7. IOHEXOL [Concomitant]
     Active Substance: IOHEXOL
     Indication: Product used for unknown indication
     Route: 042
     Dates: start: 20240119, end: 20240119
  8. ONDANSETRON [Concomitant]
     Active Substance: ONDANSETRON
     Indication: Nausea
     Route: 048
     Dates: start: 20240119, end: 20240125
  9. ONDANSETRON [Concomitant]
     Active Substance: ONDANSETRON
     Indication: Nausea
     Route: 048
     Dates: start: 20240229, end: 20240306
  10. ONDANSETRON [Concomitant]
     Active Substance: ONDANSETRON
     Indication: Nausea
     Dosage: TIME INTERVAL: AS NECESSARY
     Route: 048
     Dates: start: 20240203, end: 20240215
  11. ONDANSETRON [Concomitant]
     Active Substance: ONDANSETRON
     Indication: Nausea
     Dosage: TIME INTERVAL: AS NECESSARY
     Route: 048
     Dates: start: 20240307
  12. FLUCONAZOLE [Concomitant]
     Active Substance: FLUCONAZOLE
     Indication: Prophylaxis
     Route: 048
     Dates: start: 20240119, end: 20240215
  13. FLUCONAZOLE [Concomitant]
     Active Substance: FLUCONAZOLE
     Indication: Prophylaxis
     Route: 048
     Dates: start: 20240301
  14. FLUCONAZOLE [Concomitant]
     Active Substance: FLUCONAZOLE
     Indication: Prophylaxis
     Route: 048
     Dates: start: 20240218, end: 20240301
  15. PEG 3350 [Concomitant]
     Active Substance: POLYETHYLENE GLYCOL 3350
     Indication: Constipation
     Dosage: AS NEEDED
     Route: 048
     Dates: start: 20240120, end: 20240130
  16. DIPHENHYDRAMINE [Concomitant]
     Active Substance: DIPHENHYDRAMINE
     Indication: Pruritus
     Route: 048
     Dates: start: 20240120, end: 20240130
  17. LIDOCAINE [Concomitant]
     Active Substance: LIDOCAINE
     Indication: Maintenance of anaesthesia
     Route: 023
     Dates: start: 20240122, end: 20240122
  18. CODEINE [Concomitant]
     Active Substance: CODEINE
     Indication: Cough
     Dosage: AS NEEDED
     Route: 048
     Dates: start: 20240122, end: 20240126
  19. CODEINE [Concomitant]
     Active Substance: CODEINE
     Indication: Cough
     Dosage: TIME INTERVAL: AS NECESSARY: Q6H
     Route: 048
     Dates: start: 20240213, end: 20240215
  20. CODEINE [Concomitant]
     Active Substance: CODEINE
     Indication: Cough
     Dosage: TIME INTERVAL: AS NECESSARY
     Route: 048
     Dates: start: 20240213
  21. FUROSEMIDE [Concomitant]
     Active Substance: FUROSEMIDE
     Indication: Oedema
     Route: 042
     Dates: start: 20240123, end: 20240123
  22. FUROSEMIDE [Concomitant]
     Active Substance: FUROSEMIDE
     Indication: Oedema
     Route: 042
     Dates: start: 20240122, end: 20240122
  23. FUROSEMIDE [Concomitant]
     Active Substance: FUROSEMIDE
     Indication: Oedema
     Route: 048
     Dates: start: 202307, end: 20240118
  24. FUROSEMIDE [Concomitant]
     Active Substance: FUROSEMIDE
     Indication: Oedema
     Route: 042
     Dates: start: 20240320, end: 20240320
  25. FUROSEMIDE [Concomitant]
     Active Substance: FUROSEMIDE
     Indication: Oedema
     Route: 042
     Dates: start: 20240220, end: 20240304
  26. CEFTRIAXONE [Concomitant]
     Active Substance: CEFTRIAXONE
     Indication: Antibiotic therapy
     Route: 042
     Dates: start: 20240131, end: 20240131
  27. CEFTRIAXONE [Concomitant]
     Active Substance: CEFTRIAXONE
     Indication: Antibiotic therapy
     Route: 042
     Dates: start: 20240207, end: 20240209
  28. NYSTATIN [Concomitant]
     Active Substance: NYSTATIN
     Indication: Antifungal treatment
     Dosage: 100000 UNITS/ML
     Dates: start: 20240402
  29. COVID-19 vaccine mRNA [Concomitant]
     Indication: COVID-19 immunisation
     Dosage: 1
     Route: 030
  30. COVID-19 vaccine mRNA [Concomitant]
     Indication: COVID-19 immunisation
     Dosage: 2
     Route: 030
  31. COVID-19 vaccine mRNA [Concomitant]
     Indication: COVID-19 immunisation
     Dosage: 3
     Route: 030
  32. COVID-19 vaccine mRNA [Concomitant]
     Indication: COVID-19 immunisation
     Dosage: 4
     Route: 030
  33. COVID-19 vaccine mRNA [Concomitant]
     Indication: COVID-19 immunisation
     Dosage: 5
     Route: 030
  34. COVID-19 vaccine mRNA [Concomitant]
     Indication: COVID-19 immunisation
     Dosage: 6
     Route: 030
  35. AZACITIDINE [Suspect]
     Active Substance: AZACITIDINE
     Indication: Acute myeloid leukaemia
     Dosage: REASON FOR ENDING THE TREATMENT DOSE: END OF CYCLE
     Route: 065
     Dates: start: 20240119, end: 20240125
  36. AZACITIDINE [Suspect]
     Active Substance: AZACITIDINE
     Indication: Acute myeloid leukaemia
     Dosage: REASON FOR ENDING THE TREATMENT DOSE: END OF CYCLE
     Route: 065
     Dates: start: 20240229, end: 20240306
  37. INSULIN GLARGINE [Concomitant]
     Active Substance: INSULIN GLARGINE
     Indication: Type 2 diabetes mellitus
     Dosage: TIME INTERVAL: AS NECESSARY: 1U
     Route: 058
  38. ALLOPURINOL [Concomitant]
     Active Substance: ALLOPURINOL
     Indication: Blood uric acid decreased
     Route: 048
     Dates: start: 20240118, end: 20240124
  39. CHLORHEXIDINE [Concomitant]
     Active Substance: CHLORHEXIDINE
     Indication: Infection prophylaxis
     Dosage: ORAL RINSE
     Dates: start: 20240218
  40. CHLORHEXIDINE [Concomitant]
     Active Substance: CHLORHEXIDINE
     Indication: Infection prophylaxis
     Dosage: ORAL RINSE
     Dates: start: 20240131, end: 20240216
  41. HYDROMORPHONE [Concomitant]
     Active Substance: HYDROMORPHONE
     Indication: Pain
     Dosage: AS NEEDED
     Route: 048
     Dates: start: 20240314
  42. HYDROMORPHONE [Concomitant]
     Active Substance: HYDROMORPHONE
     Indication: Pain
     Dosage: TIME INTERVAL: AS NECESSARY
     Route: 048
     Dates: start: 20240208, end: 20240215
  43. HYDROMORPHONE [Concomitant]
     Active Substance: HYDROMORPHONE
     Indication: Pain
     Dosage: AS NEEDED
     Route: 048
     Dates: start: 20240314
  44. METHYLPHENIDATE [Concomitant]
     Active Substance: METHYLPHENIDATE
     Indication: Fatigue
     Route: 048
     Dates: start: 20250325
  45. METOCLOPRAMIDE [Concomitant]
     Active Substance: METOCLOPRAMIDE
     Indication: Nausea
     Dosage: TIME INTERVAL: 0.33333333 DAYS
     Route: 048
     Dates: start: 20240402
  46. METOCLOPRAMIDE [Concomitant]
     Active Substance: METOCLOPRAMIDE
     Indication: Nausea
     Dosage: TIME INTERVAL: AS NECESSARY
     Route: 048
     Dates: start: 20240215, end: 20240402
  47. BISOPROLOL [Concomitant]
     Active Substance: BISOPROLOL
     Indication: Hypertension
     Route: 048
     Dates: start: 2019
  48. CALCIUM CARBONATE [Concomitant]
     Active Substance: CALCIUM CARBONATE
     Indication: Supplementation therapy
     Route: 048
     Dates: start: 2019, end: 20240118
  49. MONTELUKAST [Concomitant]
     Active Substance: MONTELUKAST
     Indication: Organising pneumonia
     Route: 048
     Dates: start: 202310
  50. MINERALS\VITAMINS [Concomitant]
     Active Substance: MINERALS\VITAMINS
     Indication: Supplementation therapy
     Dosage: DOSAGE: 25 MG/G EQUIV
     Route: 048
     Dates: start: 2019, end: 20240118
  51. N acetyl l cysteine [Concomitant]
     Indication: Supplementation therapy
     Route: 048
     Dates: start: 2019, end: 20240118
  52. OMEGA 3 [Concomitant]
     Active Substance: CAPSAICIN
     Indication: Vitamin supplementation
     Route: 048
     Dates: start: 2019, end: 20240118
  53. NABILONE [Concomitant]
     Active Substance: NABILONE
     Indication: Nausea
     Dates: start: 20240320
  54. BETAMETHASONE DIPROPIONATE [Concomitant]
     Active Substance: BETAMETHASONE DIPROPIONATE
     Indication: Dermatitis
     Dosage: 0.05%?1 UNIT
     Dates: start: 20240314, end: 20240326
  55. INSULIN LISPRO [Concomitant]
     Active Substance: INSULIN LISPRO
     Indication: Type 2 diabetes mellitus
     Dosage: TIME INTERVAL: AS NECESSARY: 1 UNIT
     Route: 058
  56. VITAMIN B12 [Concomitant]
     Active Substance: CYANOCOBALAMIN
     Indication: Vitamin supplementation
     Route: 048
     Dates: end: 20240118
  57. ASCORBIC ACID\ZINC [Concomitant]
     Active Substance: ASCORBIC ACID\ZINC
     Indication: Vitamin supplementation
     Route: 048
     Dates: end: 20240118
  58. CALCIUM CITRATE\CHOLECALCIFEROL [Concomitant]
     Active Substance: CALCIUM CITRATE\CHOLECALCIFEROL
     Indication: Mineral supplementation
     Route: 048
     Dates: start: 2019, end: 20240118
  59. CALCIUM CITRATE\CHOLECALCIFEROL [Concomitant]
     Active Substance: CALCIUM CITRATE\CHOLECALCIFEROL
     Indication: Mineral supplementation
     Route: 048
     Dates: start: 20240131
  60. AZITHROMYCIN [Concomitant]
     Active Substance: AZITHROMYCIN
     Indication: Organising pneumonia
     Dosage: TIME INTERVAL: 0.33333333 WEEKS
     Route: 048
     Dates: start: 202310, end: 20240216
  61. AZITHROMYCIN [Concomitant]
     Active Substance: AZITHROMYCIN
     Indication: Organising pneumonia
     Dosage: TIME INTERVAL: 0.33333333 WEEKS
     Route: 048
     Dates: start: 20240218
  62. AZITHROMYCIN [Concomitant]
     Active Substance: AZITHROMYCIN
     Indication: Organising pneumonia
     Dosage: TIME INTERVAL: 0.33333333 WEEKS
     Route: 048
     Dates: start: 202310, end: 20240216
  63. LUTEIN [Concomitant]
     Active Substance: LUTEIN
     Indication: Supplementation therapy
     Route: 048
     Dates: end: 20240118
  64. LUTEIN [Concomitant]
     Active Substance: LUTEIN
     Indication: Supplementation therapy
     Route: 048
     Dates: start: 20240131
  65. Glycopyrronium;Indacaterol;Mometasone [Concomitant]
     Indication: Organising pneumonia
     Dosage: 1 PUFF?TOPICAL
  66. MEROPENEM [Concomitant]
     Active Substance: MEROPENEM
     Indication: Febrile neutropenia
     Route: 042
     Dates: start: 20240215, end: 20240218
  67. ENOXAPARIN [Concomitant]
     Active Substance: ENOXAPARIN
     Indication: Thrombosis prophylaxis
     Route: 058
     Dates: start: 20240215, end: 20240218
  68. MICAFUNGIN [Concomitant]
     Active Substance: MICAFUNGIN SODIUM
     Indication: Infection prophylaxis
     Route: 042
     Dates: start: 20240215, end: 20240218
  69. PANTOPRAZOLE MAGNESIUM [Concomitant]
     Active Substance: PANTOPRAZOLE MAGNESIUM
     Indication: Gastrointestinal disorder prophylaxis
     Route: 048
     Dates: start: 20240218
  70. BUDESONIDE\FORMOTEROL [Concomitant]
     Active Substance: BUDESONIDE\FORMOTEROL
     Indication: Asthma
     Dosage: 2 PUFF ?RESPIRATORY (INHALATION)
     Dates: end: 20240118
  71. THYROID [Concomitant]
     Active Substance: LEVOTHYROXINE\LIOTHYRONINE
     Indication: Hypothyroidism
     Dosage: DEICCATED
     Route: 048
  72. UBIQUINOL [Concomitant]
     Active Substance: UBIQUINOL
     Indication: Supplementation therapy
     Route: 048
     Dates: end: 20240118
  73. URSODIOL [Concomitant]
     Active Substance: URSODIOL
     Indication: Liver disorder
     Route: 048
     Dates: start: 202310, end: 20240402
  74. VITAMIN K [Concomitant]
     Active Substance: PHYTONADIONE
     Indication: Haemorrhage prophylaxis
     Dosage: TIME INTERVAL: AS NECESSARY
     Route: 048
     Dates: start: 20240213, end: 20240215
  75. VITAMIN K [Concomitant]
     Active Substance: PHYTONADIONE
     Indication: Haemorrhage prophylaxis
     Route: 048
     Dates: start: 20240123, end: 20240123
  76. VITAMIN K [Concomitant]
     Active Substance: PHYTONADIONE
     Indication: Haemorrhage prophylaxis
     Dosage: TIME INTERVAL: AS NECESSARY
     Route: 048
     Dates: start: 20240301
  77. DEXTROMETHORPHAN [Concomitant]
     Active Substance: DEXTROMETHORPHAN
     Indication: Cough
     Dosage: TIME INTERVAL: AS NECESSARY
     Dates: start: 20240128, end: 20240131
  78. SENNOSIDES [Concomitant]
     Active Substance: SENNOSIDES
     Indication: Constipation
     Route: 048
     Dates: start: 20240130, end: 20240130
  79. LEVOFLOXACIN [Concomitant]
     Active Substance: LEVOFLOXACIN
     Indication: Infection prophylaxis
     Route: 048
     Dates: start: 20240131, end: 20240215
  80. LEVOFLOXACIN [Concomitant]
     Active Substance: LEVOFLOXACIN
     Indication: Infection prophylaxis
     Route: 048
     Dates: start: 20240218
  81. Diphenhydramine;Hydrocortisone;Nystatin [Concomitant]
     Indication: Infection prophylaxis
     Dosage: TIME INTERVAL: AS NECESSARY: ORAL RINSE
     Dates: start: 20240218
  82. MORPHINE [Concomitant]
     Active Substance: MORPHINE
     Indication: Pain
     Dosage: TIME INTERVAL: AS NECESSARY
     Route: 048
     Dates: start: 20240223, end: 20240223
  83. LORAZEPAM [Concomitant]
     Active Substance: LORAZEPAM
     Indication: Anxiety
     Dosage: TIME INTERVAL: AS NECESSARY
     Route: 048
     Dates: start: 20240223, end: 20240223

REACTIONS (1)
  - Disease progression [Fatal]

NARRATIVE: CASE EVENT DATE: 20240328
